FAERS Safety Report 7198916-9 (Version None)
Quarter: 2010Q4

REPORT INFORMATION
  Report Type: 
  Country: None (occurrence: None)
  Receive Date: 20101227
  Receipt Date: 20101214
  Transmission Date: 20110411
  Serious: Yes (Other)
  Sender: FDA-Public Use
  Company Number: US-ABBOTT-10P-163-0692011-00

PATIENT
  Sex: Female

DRUGS (5)
  1. NIASPAN [Suspect]
     Indication: BLOOD CHOLESTEROL INCREASED
     Dates: start: 20100801, end: 20101209
  2. SYNTHROID [Concomitant]
     Indication: AUTOIMMUNE THYROIDITIS
  3. DIOVAN HCT [Concomitant]
     Indication: HYPERTENSION
  4. CRESTOR [Concomitant]
     Indication: BLOOD CHOLESTEROL INCREASED
  5. MOBIC [Concomitant]
     Indication: ARTHRITIS

REACTIONS (5)
  - FACIAL ASYMMETRY [None]
  - LIP SWELLING [None]
  - PRURITUS GENERALISED [None]
  - SWELLING FACE [None]
  - THROAT TIGHTNESS [None]
